FAERS Safety Report 16349190 (Version 1)
Quarter: 2019Q2

REPORT INFORMATION
  Report Type: Spontaneous
  Country: DE (occurrence: DE)
  Receive Date: 20190523
  Receipt Date: 20190523
  Transmission Date: 20190711
  Serious: Yes (Other)
  Sender: FDA-Public Use
  Company Number: DE-TEVA-2019-DE-1052394

PATIENT
  Age: 48 Year
  Sex: Male
  Weight: 95 kg

DRUGS (1)
  1. FINASTERID 1MG [Suspect]
     Active Substance: FINASTERIDE
     Dosage: 1MG
     Route: 048
     Dates: start: 20190201, end: 20190505

REACTIONS (5)
  - Suicidal ideation [Not Recovered/Not Resolved]
  - Adverse reaction [Not Recovered/Not Resolved]
  - Depression [Not Recovered/Not Resolved]
  - Erectile dysfunction [Not Recovered/Not Resolved]
  - Memory impairment [Not Recovered/Not Resolved]
